FAERS Safety Report 25181841 (Version 2)
Quarter: 2025Q2

REPORT INFORMATION
  Report Type: Spontaneous
  Country: US (occurrence: US)
  Receive Date: 20250410
  Receipt Date: 20250411
  Transmission Date: 20250716
  Serious: Yes (Hospitalization, Other)
  Sender: UCB
  Company Number: US-UCBSA-2025020150

PATIENT
  Age: 11 Year
  Sex: Female

DRUGS (2)
  1. LACOSAMIDE [Suspect]
     Active Substance: LACOSAMIDE
     Indication: Product used for unknown indication
  2. GABAPENTIN [Suspect]
     Active Substance: GABAPENTIN
     Indication: Product used for unknown indication

REACTIONS (6)
  - Lactic acidosis [Unknown]
  - Seizure like phenomena [Unknown]
  - Cardiac arrest [Unknown]
  - Ventricular arrhythmia [Unknown]
  - Mental status changes [Unknown]
  - Areflexia [Unknown]
